FAERS Safety Report 14251792 (Version 2)
Quarter: 2018Q1

REPORT INFORMATION
  Report Type: Spontaneous
  Country: DE (occurrence: DE)
  Receive Date: 20171205
  Receipt Date: 20180122
  Transmission Date: 20180508
  Serious: Yes (Other)
  Sender: FDA-Public Use
  Company Number: DE-NOVOPROD-574604

PATIENT
  Age: 80 Year
  Sex: Male
  Weight: 93 kg

DRUGS (17)
  1. BISOPROLOL                         /00802602/ [Concomitant]
     Active Substance: BISOPROLOL
     Dosage: 1/2 IN THE MORNING
     Route: 065
  2. VALSARTAN. [Concomitant]
     Active Substance: VALSARTAN
     Dosage: 1 IN THE MORNING
     Route: 065
  3. XIPAMID [Concomitant]
     Active Substance: XIPAMIDE
     Dosage: 1 IN THE MORNING
     Route: 065
  4. TILIDINE [Concomitant]
     Active Substance: TILIDINE
     Dosage: 1-0-1
     Route: 065
  5. NOVAMINSULFON [Concomitant]
     Active Substance: METAMIZOLE
     Dosage: WHEN NEEDED: 30-30-30-30
  6. PREDNISOLON                        /00016201/ [Concomitant]
     Active Substance: PREDNISOLONE
     Dosage: 1-0-0 - REDUCTION ACCORDING TO PLAN OF THE FAMILIY DOCTOR
     Route: 065
     Dates: start: 20171205
  7. XELEVIA [Concomitant]
     Active Substance: SITAGLIPTIN PHOSPHATE
     Dosage: 1 IN THE MORNING
     Route: 065
  8. LANTUS [Concomitant]
     Active Substance: INSULIN GLARGINE
     Dosage: 22 H: 36 (UNIT IS NOT REPORTED)
     Route: 065
  9. TORASEMID [Concomitant]
     Active Substance: TORSEMIDE
     Dosage: 1-1/2-0
     Route: 065
  10. PRAVASTATIN. [Concomitant]
     Active Substance: PRAVASTATIN
     Dosage: 1/2 IN THE EVENING
     Route: 065
  11. FIASP 3ML PDS290 [Suspect]
     Active Substance: INSULIN ASPART
     Indication: TYPE 2 DIABETES MELLITUS
     Dosage: UNK
     Route: 065
     Dates: start: 20170828, end: 20170925
  12. NOVODIGAL                          /00017701/ [Concomitant]
     Dosage: (MONDAY - SATURDAY: ONE IN THE MORNING)
     Route: 065
  13. TAMSULOSIN [Concomitant]
     Active Substance: TAMSULOSIN
     Dosage: 1 IN THE EVENING
     Route: 065
  14. IBEROGAST [Concomitant]
     Active Substance: HERBALS
     Dosage: 20-20-20
     Route: 065
  15. SERTRALINE [Concomitant]
     Active Substance: SERTRALINE HYDROCHLORIDE
     Dosage: 1 IN THE MORNING
     Route: 065
  16. IBEROGAST [Concomitant]
     Active Substance: HERBALS
     Dosage: 20-20-20
  17. MARCUMAR [Concomitant]
     Active Substance: PHENPROCOUMON
     Dosage: MOSTLY 1/4-1/2-1/2
     Route: 065

REACTIONS (1)
  - Pemphigoid [Not Recovered/Not Resolved]

NARRATIVE: CASE EVENT DATE: 20170923
